FAERS Safety Report 5598340-6 (Version None)
Quarter: 2008Q1

REPORT INFORMATION
  Report Type: 
  Country: None (occurrence: None)
  Receive Date: 20080122
  Receipt Date: 20080116
  Transmission Date: 20080703
  Serious: Yes (Hospitalization)
  Sender: FDA-Public Use
  Company Number: B0504306A

PATIENT
  Age: 45 Year
  Sex: Male

DRUGS (2)
  1. AUGMENTIN '125' [Suspect]
     Route: 048
     Dates: start: 20080110, end: 20080110
  2. MEDROL [Concomitant]

REACTIONS (4)
  - FALL [None]
  - HEAD INJURY [None]
  - SYNCOPE [None]
  - VOMITING [None]
